FAERS Safety Report 9385455 (Version 1)
Quarter: 2013Q3

REPORT INFORMATION
  Report Type: Spontaneous
  Country: US (occurrence: US)
  Receive Date: 20130705
  Receipt Date: 20130705
  Transmission Date: 20140515
  Serious: No
  Sender: FDA-Public Use
  Company Number: US-ASTRAZENECA-2013SE48600

PATIENT
  Age: 59 Year
  Sex: Female
  Weight: 87.5 kg

DRUGS (4)
  1. BYDUREON [Suspect]
     Indication: TYPE 2 DIABETES MELLITUS
     Route: 065
  2. LISINOPRIL [Suspect]
     Route: 065
  3. METFORMIN HCL [Concomitant]
  4. LIPITOR [Concomitant]
     Indication: BLOOD CHOLESTEROL

REACTIONS (5)
  - Injection site nodule [Unknown]
  - Injection site pruritus [Recovering/Resolving]
  - Abdominal pain upper [Recovered/Resolved]
  - Diarrhoea [Unknown]
  - Injection site erythema [Not Recovered/Not Resolved]
